FAERS Safety Report 24416289 (Version 1)
Quarter: 2024Q4

REPORT INFORMATION
  Report Type: Spontaneous
  Country: US (occurrence: None)
  Receive Date: 20241008
  Receipt Date: 20241008
  Transmission Date: 20250115
  Serious: Yes (Other)
  Sender: Public
  Company Number: None

PATIENT
  Sex: Male

DRUGS (10)
  1. VOTRIENT [Suspect]
     Active Substance: PAZOPANIB HYDROCHLORIDE
     Indication: Renal cancer
     Route: 048
     Dates: start: 20190119
  2. AMIODARONE TAB 200MG [Concomitant]
  3. AMLODIPINE [Suspect]
     Active Substance: AMLODIPINE BESYLATE
  4. ATORVASTATIN TAB 80MG [Concomitant]
  5. GABAPENTIN [Suspect]
     Active Substance: GABAPENTIN
  6. LEVOTHYROXIN TAB 50MCG [Concomitant]
  7. METOPROL TAR TAB 25MG [Concomitant]
  8. MORPHINE SUL TAB 30MG ER [Concomitant]
  9. OXYCODiAPAP TAB 10-325MG [Concomitant]
  10. VOTRIENT [Suspect]
     Active Substance: PAZOPANIB HYDROCHLORIDE

REACTIONS (1)
  - Surgery [None]
